FAERS Safety Report 21408769 (Version 1)
Quarter: 2022Q4

REPORT INFORMATION
  Report Type: Report from Study
  Country: US (occurrence: US)
  Receive Date: 20221004
  Receipt Date: 20221004
  Transmission Date: 20230113
  Serious: Yes (Hospitalization, Other)
  Sender: FDA-Public Use
  Company Number: US-ABBVIE-4135372

PATIENT
  Sex: Male
  Weight: 68.038 kg

DRUGS (5)
  1. VENCLEXTA [Suspect]
     Active Substance: VENETOCLAX
     Indication: Acute myeloid leukaemia recurrent
     Dosage: TAKE 4 TABLET(S) BY MOUTH EVERY DAY FOR 10 DAYS EVERY 28 DAY(S)
     Route: 048
     Dates: start: 2020
  2. VENCLEXTA [Suspect]
     Active Substance: VENETOCLAX
     Indication: Acute myeloid leukaemia recurrent
     Route: 048
     Dates: start: 2021
  3. CEDAZURIDINE\DECITABINE [Concomitant]
     Active Substance: CEDAZURIDINE\DECITABINE
     Indication: Acute myeloid leukaemia recurrent
     Dosage: TIME INTERVAL: 0.33333333 DAYS
  4. TIBSOVO [Concomitant]
     Active Substance: IVOSIDENIB
     Indication: Acute myeloid leukaemia recurrent
  5. ELIQUIS [Concomitant]
     Active Substance: APIXABAN
     Indication: Atrial fibrillation

REACTIONS (10)
  - Red blood cell count decreased [Unknown]
  - Incorrect dose administered [Recovered/Resolved]
  - Haemoglobin decreased [Recovered/Resolved]
  - White blood cell count decreased [Recovered/Resolved]
  - Atrial fibrillation [Recovering/Resolving]
  - Acute myeloid leukaemia recurrent [Recovered/Resolved]
  - Hypoacusis [Not Recovered/Not Resolved]
  - Haemoglobin decreased [Recovered/Resolved]
  - Neutrophil count decreased [Recovered/Resolved]
  - Acute myeloid leukaemia recurrent [Unknown]

NARRATIVE: CASE EVENT DATE: 20210101
